FAERS Safety Report 20380103 (Version 2)
Quarter: 2022Q1

REPORT INFORMATION
  Report Type: Spontaneous
  Country: JP (occurrence: JP)
  Receive Date: 20220126
  Receipt Date: 20220322
  Transmission Date: 20220423
  Serious: Yes (Other)
  Sender: FDA-Public Use
  Company Number: JP-MSD-M2022-01377

PATIENT
  Age: 78 Year
  Sex: Male

DRUGS (2)
  1. KEYTRUDA [Suspect]
     Active Substance: PEMBROLIZUMAB
     Indication: Renal cell carcinoma
     Dosage: 200 MILLIGRAM, Q3W
     Route: 041
     Dates: start: 20211206, end: 20211206
  2. INLYTA [Concomitant]
     Active Substance: AXITINIB
     Dosage: UNK
     Route: 065
     Dates: start: 20211206

REACTIONS (3)
  - Duodenal ulcer [Recovered/Resolved]
  - Fall [Recovered/Resolved]
  - Decreased appetite [Recovering/Resolving]

NARRATIVE: CASE EVENT DATE: 20220119
